FAERS Safety Report 6456131-8 (Version None)
Quarter: 2009Q4

REPORT INFORMATION
  Report Type: 
  Country: None (occurrence: None)
  Receive Date: 20091125
  Receipt Date: 20091123
  Transmission Date: 20100525
  Serious: Yes (Life-Threatening)
  Sender: FDA-Public Use
  Company Number: FR-BAYER-200925314GPV

PATIENT
  Age: 78 Year
  Sex: Female

DRUGS (5)
  1. CIFLOX [Suspect]
     Indication: PSEUDOMONAS INFECTION
     Dosage: UNIT DOSE: 750 MG
     Route: 048
     Dates: start: 20020101, end: 20090612
  2. VANCOMYCIN [Suspect]
     Indication: BACTERIAL DISEASE CARRIER
     Dosage: UNIT DOSE: 500 MG
     Route: 042
     Dates: start: 20020701, end: 20090611
  3. FUCIDINE CAP [Suspect]
     Indication: BACTERIAL DISEASE CARRIER
     Dosage: UNIT DOSE: 500 MG
     Route: 048
     Dates: start: 20020101, end: 20090612
  4. HALDOL DECANOAS [Suspect]
     Indication: PSYCHOTIC DISORDER
     Route: 030
  5. RIVOTRIL [Concomitant]
     Indication: DRUG USE FOR UNKNOWN INDICATION
     Route: 065

REACTIONS (3)
  - AREFLEXIA [None]
  - DYSPHAGIA [None]
  - WEIGHT DECREASED [None]
